FAERS Safety Report 5221180-4 (Version None)
Quarter: 2007Q1

REPORT INFORMATION
  Report Type: 
  Country: None (occurrence: None)
  Receive Date: 20061201
  Receipt Date: 20060810
  Transmission Date: 20070707
  Serious: No
  Sender: FDA-Public Use
  Company Number: 2006PV015509

PATIENT
  Age: 38 Year
  Sex: Male

DRUGS (9)
  1. BYETTA [Suspect]
     Indication: INSULIN RESISTANCE
     Dosage: SEE IMAGE
     Route: 058
     Dates: start: 20060607, end: 20060701
  2. BYETTA [Suspect]
     Indication: METABOLIC SYNDROME
     Dosage: SEE IMAGE
     Route: 058
     Dates: start: 20060607, end: 20060701
  3. BYETTA [Suspect]
     Indication: INSULIN RESISTANCE
     Dosage: SEE IMAGE
     Route: 058
     Dates: start: 20060701
  4. BYETTA [Suspect]
     Indication: METABOLIC SYNDROME
     Dosage: SEE IMAGE
     Route: 058
     Dates: start: 20060701
  5. PREVACID [Concomitant]
  6. ADVAIR DISKUS 100/50 [Concomitant]
  7. TRICOR [Concomitant]
  8. CARDIZEM [Concomitant]
  9. MICARDIS [Concomitant]

REACTIONS (7)
  - ASTHENIA [None]
  - BLOOD PRESSURE DECREASED [None]
  - DIZZINESS [None]
  - HEADACHE [None]
  - INJECTION SITE IRRITATION [None]
  - NAUSEA [None]
  - SENSATION OF FOREIGN BODY [None]
